FAERS Safety Report 19848541 (Version 1)
Quarter: 2021Q3

REPORT INFORMATION
  Report Type: Other
  Country: CL (occurrence: CL)
  Receive Date: 20210918
  Receipt Date: 20210918
  Transmission Date: 20211014
  Serious: Yes (Life-Threatening, Hospitalization, Other)
  Sender: FDA-Public Use
  Company Number: CL-SQUARE-000030

PATIENT
  Age: 25 Year
  Sex: Female

DRUGS (4)
  1. ACICLOVIR [Suspect]
     Active Substance: ACYCLOVIR
     Indication: PRODUCT USED FOR UNKNOWN INDICATION
  2. AMOXICILLIN/CLAVULANIC ACID [Suspect]
     Active Substance: AMOXICILLIN\CLAVULANIC ACID
     Indication: PHARYNGITIS BACTERIAL
  3. BENZATHIN PENICILLIN [Suspect]
     Active Substance: PENICILLIN G BENZATHINE
     Indication: PHARYNGITIS BACTERIAL
  4. N?ACETYLCYSTEINE [Concomitant]
     Active Substance: ACETYLCYSTEINE
     Indication: PRODUCT USED FOR UNKNOWN INDICATION

REACTIONS (4)
  - Hepatic encephalopathy [Recovered/Resolved]
  - Disease progression [Recovered/Resolved]
  - Coagulopathy [Recovered/Resolved]
  - Hepatitis fulminant [Recovered/Resolved]
